FAERS Safety Report 13657892 (Version 1)
Quarter: 2017Q2

REPORT INFORMATION
  Report Type: Report from Study
  Country: CA (occurrence: CA)
  Receive Date: 20170616
  Receipt Date: 20170616
  Transmission Date: 20170830
  Serious: Yes (Other)
  Sender: FDA-Public Use
  Company Number: CA-AMGEN-CANSL2017021400

PATIENT
  Age: 49 Year
  Sex: Female

DRUGS (1)
  1. ENBREL [Suspect]
     Active Substance: ETANERCEPT
     Indication: PSORIASIS
     Dosage: 50 MG, UNK
     Route: 065
     Dates: start: 20080812

REACTIONS (3)
  - Calcinosis [Not Recovered/Not Resolved]
  - Thyroidectomy [Unknown]
  - Vocal cord thickening [Unknown]

NARRATIVE: CASE EVENT DATE: 20170606
